FAERS Safety Report 26103975 (Version 1)
Quarter: 2025Q4

REPORT INFORMATION
  Report Type: Report from Study
  Country: US (occurrence: US)
  Receive Date: 20251129
  Receipt Date: 20251129
  Transmission Date: 20260118
  Serious: Yes (Other)
  Sender: ALEXION PHARMACEUTICALS
  Company Number: US-AstraZeneca-CH-01003727A

PATIENT
  Sex: Male

DRUGS (1)
  1. ACALABRUTINIB [Suspect]
     Active Substance: ACALABRUTINIB
     Indication: Chronic lymphocytic leukaemia
     Dosage: 100 MILLIGRAM, BID
     Dates: start: 202501

REACTIONS (4)
  - Deafness [Unknown]
  - Sinusitis [Unknown]
  - Cough [Unknown]
  - Asthenia [Unknown]
